FAERS Safety Report 11132619 (Version 3)
Quarter: 2015Q3

REPORT INFORMATION
  Report Type: Spontaneous
  Country: UY (occurrence: UY)
  Receive Date: 20150522
  Receipt Date: 20150904
  Transmission Date: 20151125
  Serious: Yes (Congenital Anomaly)
  Sender: FDA-Public Use
  Company Number: UY-BAYER-2015-222698

PATIENT
  Sex: Female
  Weight: 3 kg

DRUGS (1)
  1. QLAIRA [Suspect]
     Active Substance: DIENOGEST\ESTRADIOL VALERATE
     Route: 064

REACTIONS (4)
  - Fallot^s tetralogy [None]
  - Congenital pulmonary valve atresia [None]
  - Foetal exposure during pregnancy [None]
  - Cyanosis neonatal [None]

NARRATIVE: CASE EVENT DATE: 2014
